FAERS Safety Report 7512484-0 (Version None)
Quarter: 2011Q2

REPORT INFORMATION
  Report Type: 
  Country: None (occurrence: None)
  Receive Date: 20110520
  Receipt Date: 20110509
  Transmission Date: 20111010
  Serious: Yes (Hospitalization)
  Sender: FDA-Public Use
  Company Number: 2011002245

PATIENT
  Age: 60 Year
  Sex: Male

DRUGS (15)
  1. CAPTOPRIL AND HYDROCHLOROTHIAZIDE [Concomitant]
  2. OXYCODONE HCL [Concomitant]
  3. SERETIDE (SERETIDE) [Concomitant]
  4. CIPROFLOXACIN [Concomitant]
  5. BEPANTHENE (DEXPANTHENOL) [Concomitant]
  6. MIRTAZAPINE [Concomitant]
  7. PANTOPRAZOL (PANTOPRAZOLE) [Concomitant]
  8. PREDNISONE [Concomitant]
  9. FUROSEMIDE [Concomitant]
  10. ERLOTINIB HYDROCHLORIDE [Suspect]
     Indication: NON-SMALL CELL LUNG CANCER
     Dosage: 50 MG, QD, ORAL
     Route: 048
     Dates: start: 20110121
  11. ALLOPURINOL [Concomitant]
  12. SLOW-K [Concomitant]
  13. SPIRIVA [Concomitant]
  14. AUGMENTIN '125' [Concomitant]
  15. CODEINE SULFATE [Concomitant]

REACTIONS (8)
  - DYSPNOEA [None]
  - HAEMATOCRIT DECREASED [None]
  - TACHYCARDIA [None]
  - COUGH [None]
  - C-REACTIVE PROTEIN INCREASED [None]
  - HAEMOGLOBIN DECREASED [None]
  - BLOOD POTASSIUM DECREASED [None]
  - OESOPHAGOBRONCHIAL FISTULA [None]
